FAERS Safety Report 12213724 (Version 2)
Quarter: 2016Q1

REPORT INFORMATION
  Report Type: Spontaneous
  Country: RO (occurrence: RO)
  Receive Date: 20160328
  Receipt Date: 20160331
  Transmission Date: 20160526
  Serious: Yes (Other)
  Sender: FDA-Public Use
  Company Number: RO-GLAXOSMITHKLINE-RO2016GSK040885

PATIENT
  Age: 24 Year
  Sex: Female

DRUGS (1)
  1. DUAC GEL [Suspect]
     Active Substance: BENZOYL PEROXIDE\CLINDAMYCIN PHOSPHATE
     Indication: ACNE
     Dosage: UNK
     Dates: start: 20160311, end: 20160311

REACTIONS (2)
  - Hypersensitivity [Recovered/Resolved]
  - Allergic oedema [Recovered/Resolved]

NARRATIVE: CASE EVENT DATE: 20160311
